FAERS Safety Report 5104091-4 (Version None)
Quarter: 2006Q3

REPORT INFORMATION
  Report Type: 
  Country: None (occurrence: None)
  Receive Date: 20060913
  Receipt Date: 20060905
  Transmission Date: 20061208
  Serious: Yes (Hospitalization)
  Sender: FDA-Public Use
  Company Number: FR-BOEHRINGER INGELHEIM PHARMACEUTICALS, INC.-2006-FF-00790FF

PATIENT
  Age: 70 Year
  Sex: Male

DRUGS (12)
  1. JOSIR [Suspect]
     Route: 048
  2. LERCAN [Concomitant]
     Route: 048
  3. LARGACTIL [Concomitant]
     Route: 048
  4. PARLODEL [Concomitant]
     Route: 048
  5. LASILIX [Concomitant]
     Route: 048
  6. TRANSIPEG [Concomitant]
     Route: 048
  7. DEPAMIDE [Concomitant]
  8. MEPRONIZINE [Concomitant]
  9. PRAZEPAM [Concomitant]
  10. LEPTICUR [Concomitant]
  11. SINEMET [Concomitant]
  12. CERIS [Concomitant]

REACTIONS (6)
  - DEHYDRATION [None]
  - HEAT STROKE [None]
  - HYPERTHERMIA [None]
  - HYPOTENSION [None]
  - MALAISE [None]
  - RENAL FAILURE [None]
